FAERS Safety Report 15900790 (Version 1)
Quarter: 2019Q1

REPORT INFORMATION
  Report Type: Spontaneous
  Country: FR (occurrence: FR)
  Receive Date: 20190201
  Receipt Date: 20190201
  Transmission Date: 20190417
  Serious: Yes (Hospitalization, Other)
  Sender: FDA-Public Use
  Company Number: FR-GILEAD-2006-0009205

PATIENT
  Age: 56 Year
  Sex: Female
  Weight: 41 kg

DRUGS (4)
  1. VIREAD [Suspect]
     Active Substance: TENOFOVIR DISOPROXIL FUMARATE
     Indication: PRODUCT USED FOR UNKNOWN INDICATION
     Route: 048
     Dates: start: 20050115, end: 20051210
  2. LOPINAVIR/RITONAVIR [Concomitant]
     Route: 048
  3. EPIVIR [Concomitant]
     Active Substance: LAMIVUDINE
     Route: 048
  4. LANZOR [Concomitant]
     Active Substance: LANSOPRAZOLE

REACTIONS (5)
  - Pyrexia [Not Recovered/Not Resolved]
  - Respiratory disorder [Not Recovered/Not Resolved]
  - General physical health deterioration [Not Recovered/Not Resolved]
  - Lung disorder [Not Recovered/Not Resolved]
  - Acute kidney injury [Recovering/Resolving]

NARRATIVE: CASE EVENT DATE: 20051209
